FAERS Safety Report 6373414-0 (Version None)
Quarter: 2009Q3

REPORT INFORMATION
  Report Type: 
  Country: None (occurrence: None)
  Receive Date: 20090924
  Receipt Date: 20090316
  Transmission Date: 20100115
  Serious: Yes (Hospitalization)
  Sender: FDA-Public Use
  Company Number: US-ASTRAZENECA-2009UW06758

PATIENT
  Age: 43 Year
  Sex: Female
  Weight: 68 kg

DRUGS (2)
  1. SEROQUEL [Suspect]
     Indication: INSOMNIA
     Route: 048
  2. MEDICATION FOR HYPERTENSION [Concomitant]
     Route: 048

REACTIONS (3)
  - MALAISE [None]
  - VISION BLURRED [None]
  - WEIGHT INCREASED [None]
